FAERS Safety Report 5884193-5 (Version None)
Quarter: 2008Q3

REPORT INFORMATION
  Report Type: 
  Country: None (occurrence: None)
  Receive Date: 20080915
  Receipt Date: 20080908
  Transmission Date: 20090109
  Serious: Yes (Other)
  Sender: FDA-Public Use
  Company Number: US-AMGEN-US306574

PATIENT
  Sex: Female
  Weight: 49.9 kg

DRUGS (8)
  1. ENBREL [Suspect]
     Dates: start: 20070920
  2. VITAMIN TAB [Concomitant]
     Route: 048
     Dates: start: 20071023, end: 20080626
  3. VITAMIN D [Concomitant]
     Route: 048
     Dates: start: 20070920, end: 20080626
  4. CAFFEINE [Concomitant]
  5. FIORICET [Concomitant]
     Route: 048
     Dates: start: 20071101, end: 20071215
  6. INFLUENZA VACCINE [Concomitant]
     Route: 058
     Dates: start: 20071024, end: 20071024
  7. TYLENOL (CAPLET) [Concomitant]
     Route: 048
     Dates: start: 20080107, end: 20080626
  8. TUMS [Concomitant]
     Dates: start: 20080228, end: 20080626

REACTIONS (2)
  - CHORIOAMNIONITIS [None]
  - PNEUMONIA [None]
